FAERS Safety Report 7227734-8 (Version None)
Quarter: 2011Q1

REPORT INFORMATION
  Report Type: 
  Country: None (occurrence: None)
  Receive Date: 20110111
  Receipt Date: 20110111
  Transmission Date: 20110831
  Serious: No
  Sender: FDA-Public Use
  Company Number: None

PATIENT
  Weight: 77.1115 kg

DRUGS (1)
  1. GABAPENTIN [Suspect]
     Indication: NERVE INJURY
     Dosage: 300MG 1 DAILY PO
     Route: 048
     Dates: start: 20101222, end: 20101231

REACTIONS (9)
  - DIZZINESS [None]
  - ABNORMAL BEHAVIOUR [None]
  - DISCOMFORT [None]
  - MOOD SWINGS [None]
  - NAUSEA [None]
  - FEELING ABNORMAL [None]
  - TOXICITY TO VARIOUS AGENTS [None]
  - SUICIDAL IDEATION [None]
  - DEPRESSION [None]
